FAERS Safety Report 25710579 (Version 1)
Quarter: 2025Q3

REPORT INFORMATION
  Report Type: Spontaneous
  Country: US (occurrence: None)
  Receive Date: 20250820
  Receipt Date: 20250820
  Transmission Date: 20251020
  Serious: Yes (Disabling)
  Sender: FDA-CTU
  Company Number: None

PATIENT

DRUGS (1)
  1. LEXAPRO [Suspect]
     Active Substance: ESCITALOPRAM OXALATE

REACTIONS (9)
  - Withdrawal syndrome [None]
  - Impaired work ability [None]
  - Anxiety [None]
  - Dissociation [None]
  - Impaired driving ability [None]
  - Panic attack [None]
  - Brain fog [None]
  - Nervous system disorder [None]
  - Hormone level abnormal [None]

NARRATIVE: CASE EVENT DATE: 20190412
